FAERS Safety Report 9029166 (Version 2)
Quarter: 2013Q1

REPORT INFORMATION
  Report Type: Spontaneous
  Country: DE (occurrence: DE)
  Receive Date: 20130125
  Receipt Date: 20130221
  Transmission Date: 20140127
  Serious: Yes (Hospitalization, Other)
  Sender: FDA-Public Use
  Company Number: DE-AMGEN-DEUSP2013003915

PATIENT
  Age: 80 Year
  Sex: Female
  Weight: 60 kg

DRUGS (2)
  1. PROLIA [Suspect]
     Indication: OSTEOPOROSIS POSTMENOPAUSAL
     Dosage: UNK
     Route: 058
     Dates: start: 201211, end: 201211
  2. MARCUMAR [Concomitant]
     Dosage: 9 MG, QWK
     Route: 048
     Dates: start: 200905, end: 201212

REACTIONS (2)
  - International normalised ratio increased [Recovered/Resolved]
  - Spontaneous haematoma [Unknown]
